FAERS Safety Report 9780754 (Version 1)
Quarter: 2013Q4

REPORT INFORMATION
  Report Type: Report from Study
  Country: US (occurrence: US)
  Receive Date: 20131224
  Receipt Date: 20131224
  Transmission Date: 20140711
  Serious: Yes (Other)
  Sender: FDA-Public Use
  Company Number: PHEH2013US026158

PATIENT
  Sex: Female

DRUGS (8)
  1. GILENYA [Suspect]
     Indication: MULTIPLE SCLEROSIS
     Dosage: 0.5 MG, QD
     Route: 048
     Dates: start: 20130525
  2. MELOXICAM [Concomitant]
  3. ESTRADIOL [Concomitant]
  4. VICODIN [Concomitant]
  5. LORAZEPAM [Concomitant]
  6. PROMETHAZINE [Concomitant]
  7. AMLODIPINE [Concomitant]
  8. DICLOFENAC [Concomitant]

REACTIONS (3)
  - Blood triglycerides increased [Unknown]
  - Blood cholesterol increased [Unknown]
  - High density lipoprotein increased [Unknown]
